FAERS Safety Report 6701512-8 (Version None)
Quarter: 2010Q2

REPORT INFORMATION
  Report Type: 
  Country: None (occurrence: None)
  Receive Date: 20100429
  Receipt Date: 20100421
  Transmission Date: 20101027
  Serious: Yes (Other)
  Sender: FDA-Public Use
  Company Number: US-JNJFOC-20100405748

PATIENT
  Sex: Male
  Weight: 81.65 kg

DRUGS (9)
  1. FENTANYL CITRATE [Suspect]
     Indication: ARTHRALGIA
     Route: 062
     Dates: start: 20100401
  2. FENTANYL CITRATE [Suspect]
     Indication: BACK PAIN
     Route: 062
     Dates: start: 20100401
  3. FENTANYL CITRATE [Suspect]
     Indication: DRUG USE FOR UNKNOWN INDICATION
     Route: 062
  4. FENTANYL CITRATE [Suspect]
     Route: 062
  5. DIOVAN HCT [Concomitant]
     Indication: HYPERTENSION
     Dosage: 320MG/12.5
     Route: 048
     Dates: start: 20000101
  6. COREG [Concomitant]
     Indication: HYPERTENSION
     Route: 048
     Dates: start: 20000101
  7. LUNESTA [Concomitant]
     Indication: INSOMNIA
     Dosage: 3 MG ONCE AT NIGHT
     Route: 048
     Dates: start: 19950101
  8. NEXIUM [Concomitant]
     Indication: HIATUS HERNIA
     Route: 048
     Dates: start: 20000101
  9. PERCOCET [Concomitant]
     Indication: BREAKTHROUGH PAIN
     Dosage: 10/325 /TABLET
     Route: 048
     Dates: start: 20050101

REACTIONS (8)
  - APPLICATION SITE PRURITUS [None]
  - APPLICATION SITE RASH [None]
  - APPLICATION SITE URTICARIA [None]
  - ARTHRITIS [None]
  - BLOOD POTASSIUM DECREASED [None]
  - HYPERTENSION [None]
  - MYALGIA [None]
  - PRODUCT QUALITY ISSUE [None]
